FAERS Safety Report 25412632 (Version 1)
Quarter: 2025Q2

REPORT INFORMATION
  Report Type: Spontaneous
  Country: AU (occurrence: None)
  Receive Date: 20250607
  Receipt Date: 20250607
  Transmission Date: 20250716
  Serious: Yes (Disabling)
  Sender: FDA-CTU
  Company Number: None

PATIENT
  Age: 24 Year
  Sex: Female
  Weight: 68 kg

DRUGS (2)
  1. LEXAPRO [Suspect]
     Active Substance: ESCITALOPRAM OXALATE
     Indication: Depression
  2. LEXAPRO [Suspect]
     Active Substance: ESCITALOPRAM OXALATE
     Indication: Anxiety

REACTIONS (7)
  - Withdrawal syndrome [None]
  - Akathisia [None]
  - Nausea [None]
  - Myalgia [None]
  - Anxiety [None]
  - Fatigue [None]
  - Paranoia [None]

NARRATIVE: CASE EVENT DATE: 20240202
